FAERS Safety Report 23280271 (Version 1)
Quarter: 2023Q4

REPORT INFORMATION
  Report Type: Spontaneous
  Country: NL (occurrence: NL)
  Receive Date: 20231210
  Receipt Date: 20231210
  Transmission Date: 20240109
  Serious: Yes (Other)
  Sender: FDA-Public Use
  Company Number: NL-ROCHE-3384938

PATIENT

DRUGS (9)
  1. CYCLOPHOSPHAMIDE [Interacting]
     Active Substance: CYCLOPHOSPHAMIDE
     Indication: Product used for unknown indication
     Dosage: UNK
     Route: 065
  2. DOXORUBICIN [Interacting]
     Active Substance: DOXORUBICIN
     Indication: Product used for unknown indication
     Dosage: UNK
     Route: 065
  3. INFLIXIMAB [Interacting]
     Active Substance: INFLIXIMAB
     Indication: Product used for unknown indication
     Dosage: 0.5 UG/ML
     Route: 065
  4. PNEUMOCOCCAL VACCINE POLYVALENT [Interacting]
     Active Substance: PNEUMOCOCCAL VACCINE POLYVALENT
     Indication: Prophylaxis
     Dosage: UNK
     Route: 065
  5. PNEUMOCOCCAL VACCINE POLYVALENT [Interacting]
     Active Substance: PNEUMOCOCCAL VACCINE POLYVALENT
     Dosage: UNK
     Route: 065
  6. PNEUMOCOCCAL VACCINE POLYVALENT [Interacting]
     Active Substance: PNEUMOCOCCAL VACCINE POLYVALENT
     Dosage: UNK
     Route: 065
  7. PREDNISONE [Interacting]
     Active Substance: PREDNISONE
     Indication: Product used for unknown indication
     Dosage: UNK
     Route: 065
  8. RITUXIMAB [Interacting]
     Active Substance: RITUXIMAB
     Indication: Product used for unknown indication
     Dosage: UNK
     Route: 065
  9. VINCRISTINE [Interacting]
     Active Substance: VINCRISTINE
     Indication: Product used for unknown indication
     Dosage: UNK
     Route: 065

REACTIONS (5)
  - Hypogammaglobulinaemia [Unknown]
  - Premature baby [Unknown]
  - Foetal exposure during pregnancy [Unknown]
  - Vaccine interaction [Unknown]
  - Vaccination failure [Unknown]
